FAERS Safety Report 18029957 (Version 1)
Quarter: 2020Q3

REPORT INFORMATION
  Report Type: Spontaneous
  Country: US (occurrence: US)
  Receive Date: 20200715
  Receipt Date: 20200715
  Transmission Date: 20201103
  Serious: Yes (Hospitalization)
  Sender: FDA-Public Use
  Company Number: None

PATIENT
  Age: 76 Year
  Sex: Female

DRUGS (13)
  1. ASPIRIN. [Concomitant]
     Active Substance: ASPIRIN
  2. DILTIAZEM. [Concomitant]
     Active Substance: DILTIAZEM
  3. CEFUROXIME. [Concomitant]
     Active Substance: CEFUROXIME
  4. ESBRIET [Suspect]
     Active Substance: PIRFENIDONE
     Indication: IDIOPATHIC PULMONARY FIBROSIS
     Route: 048
     Dates: start: 20190328
  5. HYDROXYZ PAM [Concomitant]
     Active Substance: HYDROXYZINE PAMOATE
  6. TRIAMCINOLON CRE [Concomitant]
  7. ELIQUIS [Concomitant]
     Active Substance: APIXABAN
  8. PROAIR HFA [Concomitant]
     Active Substance: ALBUTEROL SULFATE
  9. PREDNISONE. [Concomitant]
     Active Substance: PREDNISONE
  10. CEFDINIR. [Concomitant]
     Active Substance: CEFDINIR
  11. LOVASTATIN. [Concomitant]
     Active Substance: LOVASTATIN
  12. BREO ELLIPTA [Concomitant]
     Active Substance: FLUTICASONE FUROATE\VILANTEROL TRIFENATATE
  13. DOXYCYCL HYC [Concomitant]

REACTIONS (3)
  - Vomiting [None]
  - Blood pressure increased [None]
  - Cough [None]

NARRATIVE: CASE EVENT DATE: 202006
